FAERS Safety Report 21440878 (Version 5)
Quarter: 2023Q4

REPORT INFORMATION
  Report Type: Report from Study
  Country: US (occurrence: US)
  Receive Date: 20221011
  Receipt Date: 20231018
  Transmission Date: 20240110
  Serious: Yes (Hospitalization, Other)
  Sender: FDA-Public Use
  Company Number: US-TAKEDA-2022TUS071355

PATIENT
  Age: 25 Year
  Sex: Male
  Weight: 53 kg

DRUGS (34)
  1. TEDUGLUTIDE [Suspect]
     Active Substance: TEDUGLUTIDE
     Indication: Short-bowel syndrome
     Dosage: 2.8 MILLIGRAM, QD
     Route: 042
     Dates: start: 20220213
  2. TEDUGLUTIDE [Suspect]
     Active Substance: TEDUGLUTIDE
     Indication: Short-bowel syndrome
     Dosage: 2.8 MILLIGRAM, QD
     Route: 042
     Dates: start: 20220213
  3. TEDUGLUTIDE [Suspect]
     Active Substance: TEDUGLUTIDE
     Indication: Short-bowel syndrome
     Dosage: 2.8 MILLIGRAM, QD
     Route: 042
     Dates: start: 20220213
  4. TEDUGLUTIDE [Suspect]
     Active Substance: TEDUGLUTIDE
     Indication: Short-bowel syndrome
     Dosage: 2.8 MILLIGRAM, QD
     Route: 042
     Dates: start: 20220213
  5. METHYLPHENIDATE HYDROCHLORIDE [Concomitant]
     Active Substance: METHYLPHENIDATE HYDROCHLORIDE
     Dosage: 0.50 MILLIGRAM, QD
     Route: 048
     Dates: start: 2022
  6. FOLIC ACID [Concomitant]
     Active Substance: FOLIC ACID
     Indication: Hypovitaminosis
     Dosage: 1 MILLIGRAM, 3/WEEK
     Route: 048
     Dates: start: 2022
  7. FOLIC ACID [Concomitant]
     Active Substance: FOLIC ACID
     Indication: Mineral deficiency
  8. ENOXAPARIN [Concomitant]
     Active Substance: ENOXAPARIN
     Indication: Deep vein thrombosis
     Dosage: 60 MILLIGRAM, QD
     Route: 058
     Dates: start: 20211205, end: 2022
  9. ENOXAPARIN [Concomitant]
     Active Substance: ENOXAPARIN
     Dosage: 0.50 MILLILITER, BID
     Route: 058
     Dates: start: 2022
  10. ZOFRAN [Concomitant]
     Active Substance: ONDANSETRON HYDROCHLORIDE
     Indication: Nausea
     Dosage: 2 MILLIGRAM, SINGLE
     Route: 042
     Dates: start: 20220930, end: 20220930
  11. ASCORBIC ACID [Concomitant]
     Active Substance: ASCORBIC ACID
     Indication: Hypovitaminosis
     Dosage: 500 MILLIGRAM, QD
     Route: 042
     Dates: start: 20211205
  12. ASCORBIC ACID [Concomitant]
     Active Substance: ASCORBIC ACID
     Indication: Mineral deficiency
  13. ATROPINE [Concomitant]
     Active Substance: ATROPINE
     Indication: Diarrhoea
     Dosage: 2.5 MILLIGRAM, TID
     Route: 042
     Dates: start: 20211205
  14. DIPHENOXYLATE [Concomitant]
     Active Substance: DIPHENOXYLATE
     Indication: Diarrhoea
     Dosage: 5 MILLIGRAM, TID
     Route: 048
     Dates: start: 20211205
  15. BENZOCAINE [Concomitant]
     Active Substance: BENZOCAINE
     Indication: Jejunostomy
     Dosage: 28 GRAM, BID
     Route: 061
     Dates: start: 20211205
  16. SODIUM CITRATE [Concomitant]
     Active Substance: SODIUM CITRATE
     Indication: Hypovitaminosis
     Dosage: 15 MILLILITER, TID
     Route: 048
     Dates: start: 20211205
  17. SODIUM CITRATE [Concomitant]
     Active Substance: SODIUM CITRATE
     Indication: Mineral deficiency
  18. DIATRIZOATE SODIUM [Concomitant]
     Active Substance: DIATRIZOATE SODIUM
     Indication: Contrast media reaction
     Dosage: 120 MILLIGRAM, SINGLE
     Route: 048
     Dates: start: 20211205, end: 20211205
  19. GUAR GUM [Concomitant]
     Active Substance: GUAR GUM
     Indication: Hypovitaminosis
     Dosage: 4 GRAM, QID
     Route: 048
     Dates: start: 20211205
  20. GUAR GUM [Concomitant]
     Active Substance: GUAR GUM
     Indication: Mineral deficiency
  21. LANTHANUM CARBONATE [Concomitant]
     Active Substance: LANTHANUM CARBONATE
     Indication: Hypovitaminosis
     Dosage: 1000 MILLIGRAM, BID
     Route: 048
     Dates: start: 20211205
  22. LANTHANUM CARBONATE [Concomitant]
     Active Substance: LANTHANUM CARBONATE
     Indication: Mineral deficiency
  23. FAT EMULSION NOS [Concomitant]
     Active Substance: EGG PHOSPHOLIPIDS\SAFFLOWER OIL\SOYBEAN OIL
     Indication: Hypovitaminosis
     Dosage: 250 MILLILITER, QOD
     Route: 042
     Dates: start: 20211205
  24. FAT EMULSION NOS [Concomitant]
     Active Substance: EGG PHOSPHOLIPIDS\SAFFLOWER OIL\SOYBEAN OIL
     Indication: Mineral deficiency
  25. LOPERAMIDE [Concomitant]
     Active Substance: LOPERAMIDE
     Indication: Diarrhoea
     Dosage: 15 MILLILITER, QID
     Route: 048
     Dates: start: 20211205
  26. OXYCODONE [Concomitant]
     Active Substance: OXYCODONE
     Indication: Pain
     Dosage: 5 MILLIGRAM
     Route: 042
     Dates: start: 20211205
  27. PANTOPRAZOLE [Concomitant]
     Active Substance: PANTOPRAZOLE
     Indication: Gastrooesophageal reflux disease
     Dosage: 40 MILLIGRAM, BID
     Route: 042
     Dates: start: 20211205
  28. TESTOSTERONE [Concomitant]
     Active Substance: TESTOSTERONE
     Indication: Blood testosterone decreased
     Dosage: 4 MILLIGRAM, QD
     Route: 061
     Dates: start: 20211205
  29. VALPROIC ACID [Concomitant]
     Active Substance: VALPROIC ACID
     Indication: Seizure
     Dosage: 250 MILLIGRAM, QD
     Route: 042
     Dates: start: 20211205
  30. VANCOMYCIN [Concomitant]
     Active Substance: VANCOMYCIN
     Indication: Sepsis
     Dosage: 1.25 GRAM
     Route: 042
     Dates: start: 20211205
  31. VENLAFAXINE [Concomitant]
     Active Substance: VENLAFAXINE HYDROCHLORIDE
     Indication: Depression
     Dosage: 37.5 MILLIGRAM, QD
     Route: 048
     Dates: start: 20211205
  32. ZINC OXIDE [Concomitant]
     Active Substance: ZINC OXIDE
     Indication: Rash
     Dosage: 20 PERCENT, QD
     Route: 061
     Dates: start: 20211205
  33. ACETAMINOPHEN [Concomitant]
     Active Substance: ACETAMINOPHEN
     Indication: Medical device pain
     Dosage: 650 MILLIGRAM
     Route: 042
     Dates: start: 20211205
  34. DIPHENHYDRAMINE HYDROCHLORIDE [Concomitant]
     Active Substance: DIPHENHYDRAMINE HYDROCHLORIDE
     Indication: Hypersensitivity
     Dosage: 0.5 MILLILITER, SINGLE
     Route: 042
     Dates: start: 20220930, end: 20220930

REACTIONS (2)
  - Staphylococcal bacteraemia [Recovered/Resolved]
  - Candida infection [Recovered/Resolved]

NARRATIVE: CASE EVENT DATE: 20220929
